FAERS Safety Report 8300730-5 (Version None)
Quarter: 2012Q2

REPORT INFORMATION
  Report Type: 
  Country: None (occurrence: None)
  Receive Date: 20120420
  Receipt Date: 20120416
  Transmission Date: 20120825
  Serious: Yes (Death)
  Sender: FDA-Public Use
  Company Number: PHHY2012CA029242

PATIENT
  Sex: Female

DRUGS (2)
  1. EXJADE [Suspect]
     Indication: MYELODYSPLASTIC SYNDROME
     Dosage: 1000 MG QD
     Route: 048
     Dates: start: 20090401
  2. EXJADE [Suspect]
     Dosage: 100 MG QD
     Route: 048
     Dates: end: 20111001

REACTIONS (1)
  - ACUTE MYELOID LEUKAEMIA [None]
